FAERS Safety Report 14063785 (Version 9)
Quarter: 2018Q4

REPORT INFORMATION
  Report Type: Spontaneous
  Country: US (occurrence: US)
  Receive Date: 20171009
  Receipt Date: 20181220
  Transmission Date: 20190204
  Serious: Yes (Other)
  Sender: FDA-Public Use
  Company Number: PHEH2017US032432

PATIENT
  Age: 32 Year
  Sex: Female
  Weight: 56.69 kg

DRUGS (1)
  1. ZOFRAN [Suspect]
     Active Substance: ONDANSETRON HYDROCHLORIDE
     Indication: MORNING SICKNESS
     Route: 048
     Dates: start: 20050201, end: 20051119

REACTIONS (12)
  - Anaemia of pregnancy [Unknown]
  - Oligohydramnios [Unknown]
  - Maternal exposure during pregnancy [Unknown]
  - Injury [Unknown]
  - Gestational hypertension [Unknown]
  - Renal failure [Unknown]
  - Pain in extremity [Unknown]
  - Product use in unapproved indication [Unknown]
  - Pre-eclampsia [Unknown]
  - Hepatic failure [Unknown]
  - Premature delivery [Unknown]
  - Abdominal distension [Unknown]

NARRATIVE: CASE EVENT DATE: 20051109
